FAERS Safety Report 6395550-5 (Version None)
Quarter: 2009Q4

REPORT INFORMATION
  Report Type: 
  Country: None (occurrence: None)
  Receive Date: 20091009
  Receipt Date: 20091001
  Transmission Date: 20100525
  Serious: Yes (Other)
  Sender: FDA-Public Use
  Company Number: NL-MERCK-0910USA00497

PATIENT

DRUGS (1)
  1. DECADRON [Suspect]
     Indication: DEAFNESS NEUROSENSORY
     Route: 048

REACTIONS (2)
  - DIABETES MELLITUS [None]
  - MYOCARDIAL INFARCTION [None]
